FAERS Safety Report 6340319-0 (Version None)
Quarter: 2009Q3

REPORT INFORMATION
  Report Type: 
  Country: None (occurrence: None)
  Receive Date: 20090903
  Receipt Date: 20090820
  Transmission Date: 20100115
  Serious: Yes (Hospitalization, Other)
  Sender: FDA-Public Use
  Company Number: US-RANBAXY-2009US-24664

PATIENT

DRUGS (4)
  1. CETIRIZINE HCL [Suspect]
     Indication: DRUG USE FOR UNKNOWN INDICATION
     Dosage: 10 MG, UNK
     Route: 048
  2. MAC [Concomitant]
     Indication: OESOPHAGOGASTRODUODENOSCOPY
     Dosage: UNK , UNK
     Route: 065
  3. CIPROFLAXACIN [Concomitant]
     Indication: OESOPHAGOGASTRODUODENOSCOPY
     Dosage: 400.000000 MG, UNK
     Route: 042
  4. FLAGYL [Concomitant]
     Indication: OESOPHAGOGASTRODUODENOSCOPY
     Dosage: 500.000000 MG, UNK
     Route: 042

REACTIONS (2)
  - MEDICATION ERROR [None]
  - OESOPHAGEAL PERFORATION [None]
